FAERS Safety Report 9224866 (Version 1)
Quarter: 2013Q2

REPORT INFORMATION
  Report Type: Spontaneous
  Country: US (occurrence: None)
  Receive Date: 20130409
  Receipt Date: 20130409
  Transmission Date: 20140414
  Serious: No
  Sender: FDA-Public Use
  Company Number: None

PATIENT
  Age: 73 Year
  Sex: Male

DRUGS (2)
  1. JAKAFI [Suspect]
     Indication: MYELOFIBROSIS
     Route: 048
     Dates: start: 20121023
  2. JAKAFI [Suspect]
     Indication: METAPLASIA
     Route: 048
     Dates: start: 20121023

REACTIONS (1)
  - Blood urine present [None]
